FAERS Safety Report 7403741-7 (Version None)
Quarter: 2011Q2

REPORT INFORMATION
  Report Type: 
  Country: None (occurrence: None)
  Receive Date: 20110401
  Receipt Date: 20110318
  Transmission Date: 20111010
  Serious: Yes (Other)
  Sender: FDA-Public Use
  Company Number: 029637

PATIENT
  Age: 30 Year
  Sex: Female

DRUGS (3)
  1. METHOTREXATE [Concomitant]
  2. SULPHASALAZINE [Concomitant]
  3. CIMZIA [Suspect]
     Indication: RHEUMATOID ARTHRITIS
     Dosage: (SUBCUTANEOUS)
     Route: 058
     Dates: start: 20101005, end: 20101005

REACTIONS (3)
  - RASH [None]
  - PRURITUS [None]
  - SWELLING FACE [None]
